FAERS Safety Report 7297863-1 (Version None)
Quarter: 2011Q1

REPORT INFORMATION
  Report Type: 
  Country: None (occurrence: None)
  Receive Date: 20110217
  Receipt Date: 20101119
  Transmission Date: 20110831
  Serious: No
  Sender: FDA-Public Use
  Company Number: US-KINGPHARMUSA00001-K201001413

PATIENT
  Age: 45 Year
  Sex: Female
  Weight: 65.76 kg

DRUGS (5)
  1. FLECTOR [Suspect]
     Indication: MUSCULOSKELETAL PAIN
     Dosage: 1/2 PATCH, SINGLE
     Route: 061
     Dates: start: 20101119
  2. AZOR [Concomitant]
  3. FLECTOR [Suspect]
     Dosage: 1 PATCH, QD
     Dates: start: 20100101
  4. COREG [Concomitant]
  5. LIPITOR [Concomitant]

REACTIONS (1)
  - NAUSEA [None]
